FAERS Safety Report 14789662 (Version 2)
Quarter: 2018Q2

REPORT INFORMATION
  Report Type: Spontaneous
  Country: IN (occurrence: IN)
  Receive Date: 20180423
  Receipt Date: 20180507
  Transmission Date: 20180711
  Serious: Yes (Death, Hospitalization, Other)
  Sender: FDA-Public Use
  Company Number: IN-TORRENT-00001690

PATIENT
  Age: 40 Year
  Sex: Female

DRUGS (1)
  1. CETRIZINE [Suspect]
     Active Substance: CETIRIZINE HYDROCHLORIDE
     Indication: PRODUCT USED FOR UNKNOWN INDICATION
     Dosage: 20 TABLETS
     Route: 048

REACTIONS (17)
  - Tachycardia [Unknown]
  - Acute respiratory failure [Fatal]
  - Ventricular fibrillation [Unknown]
  - Leukocytosis [Unknown]
  - Depressed level of consciousness [Unknown]
  - Cardiotoxicity [Unknown]
  - Abdominal pain upper [Unknown]
  - Respiratory acidosis [Unknown]
  - Metabolic acidosis [Unknown]
  - Nausea [Unknown]
  - Overdose [Unknown]
  - Hypotension [Unknown]
  - Generalised tonic-clonic seizure [Unknown]
  - Haemorrhagic diathesis [Fatal]
  - Vomiting [Unknown]
  - Acute myocardial infarction [Unknown]
  - Bradycardia [Unknown]
